FAERS Safety Report 5614439-X (Version None)
Quarter: 2008Q1

REPORT INFORMATION
  Report Type: 
  Country: None (occurrence: None)
  Receive Date: 20080130
  Receipt Date: 20080117
  Transmission Date: 20080703
  Serious: Yes (Hospitalization)
  Sender: FDA-Public Use
  Company Number: US022274

PATIENT
  Age: 25 Year
  Sex: Female

DRUGS (7)
  1. ACTIQ [Suspect]
     Indication: CANCER PAIN
     Dosage: 200 UG QD BUCCAL
     Route: 002
     Dates: start: 20070817, end: 20070817
  2. ARACYTINE [Suspect]
     Indication: ACUTE MYELOID LEUKAEMIA
  3. OXYCONTIN [Suspect]
     Indication: PAIN
     Dosage: 20 MG BID ORAL
     Route: 048
     Dates: start: 20070817
  4. OXYNORM [Suspect]
     Indication: PAIN
     Dosage: 20 MG QD ORAL
     Route: 048
     Dates: start: 20070814, end: 20070817
  5. OXYNORM [Suspect]
     Indication: PAIN
     Dosage: 5 MG QD ORAL
     Route: 048
     Dates: start: 20070818
  6. CERUBIDINE [Concomitant]
  7. METOCLOPRAMIDE HCL [Concomitant]

REACTIONS (2)
  - CEREBELLAR SYNDROME [None]
  - SPEECH DISORDER [None]
